FAERS Safety Report 19243207 (Version 1)
Quarter: 2021Q2

REPORT INFORMATION
  Report Type: Spontaneous
  Country: NL (occurrence: NL)
  Receive Date: 20210511
  Receipt Date: 20210511
  Transmission Date: 20210717
  Serious: Yes (Other)
  Sender: FDA-Public Use
  Company Number: NL-SAMSUNG BIOEPIS-SB-2021-11208

PATIENT
  Sex: Male

DRUGS (1)
  1. INFLIXIMAB [Suspect]
     Active Substance: INFLIXIMAB
     Indication: COLITIS ULCERATIVE
     Dosage: UNKNOWN?INFLIXIMAB INFUUS?UNKNOWN, NO THERAPIST FROM MOTHER
     Route: 064

REACTIONS (3)
  - Hypogammaglobulinaemia [Unknown]
  - Foetal exposure during pregnancy [Unknown]
  - Decreased immune responsiveness [Unknown]
